FAERS Safety Report 13675151 (Version 2)
Quarter: 2017Q4

REPORT INFORMATION
  Report Type: Report from Study
  Country: JP (occurrence: JP)
  Receive Date: 20170621
  Receipt Date: 20171106
  Transmission Date: 20180320
  Serious: Yes (Other)
  Sender: FDA-Public Use
  Company Number: JP-SUN PHARMACEUTICAL INDUSTRIES LTD-2017R1-143578

PATIENT
  Age: 78 Year
  Sex: Female

DRUGS (2)
  1. CISPLATIN. [Suspect]
     Active Substance: CISPLATIN
     Indication: GINGIVAL CANCER
     Dosage: 5 MG/M^2/DAY X 9
     Route: 065
  2. DOCETAXEL. [Suspect]
     Active Substance: DOCETAXEL
     Indication: GINGIVAL CANCER
     Dosage: 10 MG/M^2/WEEK X 2
     Route: 065

REACTIONS (1)
  - Facial paralysis [Recovered/Resolved]
